FAERS Safety Report 20524478 (Version 2)
Quarter: 2022Q2

REPORT INFORMATION
  Report Type: Spontaneous
  Country: US (occurrence: US)
  Receive Date: 20220228
  Receipt Date: 20220621
  Transmission Date: 20220721
  Serious: Yes (Other)
  Sender: FDA-Public Use
  Company Number: US-Hikma Pharmaceuticals-US-H14001-22-00572

PATIENT
  Age: 60 Year
  Sex: Male

DRUGS (7)
  1. EPIRUBICIN [Suspect]
     Active Substance: EPIRUBICIN
     Indication: Neurogenic tumour
     Dosage: DAYS 1 AND 2
     Route: 065
     Dates: start: 20190603
  2. EPIRUBICIN [Suspect]
     Active Substance: EPIRUBICIN
     Indication: Metastases to lung
     Dosage: DAYS 1 AND 2
     Route: 065
     Dates: start: 20190625
  3. IFOSFAMIDE [Suspect]
     Active Substance: IFOSFAMIDE
     Indication: Neurogenic tumour
     Dosage: DAYS 1-3
     Route: 065
     Dates: start: 20190603
  4. IFOSFAMIDE [Suspect]
     Active Substance: IFOSFAMIDE
     Indication: Metastases to lung
     Dosage: DAYS 1-3
     Route: 065
     Dates: start: 20190625
  5. MESNA [Suspect]
     Active Substance: MESNA
     Indication: Neurogenic tumour
     Dosage: UNKNOWN; CYCLE 1
     Route: 065
     Dates: start: 20190603
  6. MESNA [Suspect]
     Active Substance: MESNA
     Indication: Metastases to lung
     Dosage: UNKNOWN; CYCLE 2
     Route: 065
     Dates: start: 20190625
  7. PEMBROLIZUMAB [Concomitant]
     Active Substance: PEMBROLIZUMAB
     Indication: Neurofibrosarcoma
     Dosage: UNKNOWN
     Route: 065

REACTIONS (1)
  - Malignant neoplasm progression [Recovered/Resolved]
